FAERS Safety Report 7704353-8 (Version None)
Quarter: 2011Q3

REPORT INFORMATION
  Report Type: 
  Country: None (occurrence: None)
  Receive Date: 20110823
  Receipt Date: 20110812
  Transmission Date: 20111222
  Serious: Yes (Other)
  Sender: FDA-Public Use
  Company Number: US-MERCK-1108USA02058

PATIENT
  Age: 66 Year
  Sex: Female

DRUGS (3)
  1. SUCRALFATE [Concomitant]
     Route: 065
  2. ESOMEPRAZOLE [Concomitant]
     Route: 065
  3. FOSAMAX [Suspect]
     Indication: OSTEOPOROSIS
     Route: 048

REACTIONS (2)
  - FOOT FRACTURE [None]
  - FEMUR FRACTURE [None]
